FAERS Safety Report 8527044 (Version 3)
Quarter: 2013Q4

REPORT INFORMATION
  Report Type: Spontaneous
  Country: US (occurrence: None)
  Receive Date: 20120326
  Receipt Date: 20131226
  Transmission Date: 20140711
  Serious: Yes (Other)
  Sender: FDA-Public Use
  Company Number: PHHY2011US62431

PATIENT
  Age: 83 Year
  Sex: Female

DRUGS (3)
  1. TASIGNA [Suspect]
     Indication: CHRONIC MYELOID LEUKAEMIA
     Route: 048
     Dates: start: 20110615
  2. TASIGNA [Suspect]
     Route: 048
     Dates: start: 20110615
  3. ATENOLOL (ATENOLOL) [Concomitant]

REACTIONS (11)
  - Urinary tract infection [None]
  - Dysphagia [None]
  - Abdominal discomfort [None]
  - Decreased appetite [None]
  - Oropharyngeal pain [None]
  - Asthenia [None]
  - Fatigue [None]
  - Full blood count abnormal [None]
  - Weight decreased [None]
  - Insomnia [None]
  - Dry throat [None]
